FAERS Safety Report 23795439 (Version 1)
Quarter: 2024Q2

REPORT INFORMATION
  Report Type: Spontaneous
  Country: US (occurrence: US)
  Receive Date: 20240429
  Receipt Date: 20240429
  Transmission Date: 20240715
  Serious: Yes (Other)
  Sender: FDA-Public Use
  Company Number: US-TEVA-VS-3186811

PATIENT
  Age: 67 Year
  Sex: Male

DRUGS (1)
  1. AUSTEDO XR [Suspect]
     Active Substance: DEUTETRABENAZINE
     Indication: Huntington^s disease
     Route: 065

REACTIONS (9)
  - Dementia [Unknown]
  - Depression [Unknown]
  - Oropharyngeal dysplasia [Unknown]
  - Arthralgia [Unknown]
  - Hernia repair [Unknown]
  - Haemorrhoid operation [Unknown]
  - Dysarthria [Unknown]
  - Vasectomy [Unknown]
  - Gait disturbance [Unknown]
